FAERS Safety Report 18943964 (Version 1)
Quarter: 2021Q1

REPORT INFORMATION
  Report Type: Spontaneous
  Country: US (occurrence: US)
  Receive Date: 20210226
  Receipt Date: 20210226
  Transmission Date: 20210420
  Serious: Yes (Other)
  Sender: FDA-Public Use
  Company Number: US-MICRO LABS LIMITED-ML2021-00558

PATIENT
  Age: 52 Year
  Sex: Male

DRUGS (3)
  1. VERAPAMIL HYDROCHLORIDE. [Suspect]
     Active Substance: VERAPAMIL HYDROCHLORIDE
     Indication: ANTERIOR SPINAL ARTERY SYNDROME
     Route: 013
  2. TISSUE PLASMINOGEN ACTIVATOR (UNSPECIFIED) [Concomitant]
     Indication: ANTERIOR SPINAL ARTERY SYNDROME
     Route: 013
  3. EPTIFIBATIDE. [Suspect]
     Active Substance: EPTIFIBATIDE
     Indication: ANTERIOR SPINAL ARTERY SYNDROME
     Route: 013

REACTIONS (1)
  - Spinal subarachnoid haemorrhage [Recovering/Resolving]
